FAERS Safety Report 21126855 (Version 1)
Quarter: 2022Q3

REPORT INFORMATION
  Report Type: Spontaneous
  Country: CN (occurrence: CN)
  Receive Date: 20220725
  Receipt Date: 20220725
  Transmission Date: 20221026
  Serious: Yes (Other)
  Sender: FDA-Public Use
  Company Number: None

PATIENT
  Age: 13 Year
  Sex: Male
  Weight: 40.5 kg

DRUGS (4)
  1. CYCLOPHOSPHAMIDE [Suspect]
     Active Substance: CYCLOPHOSPHAMIDE
     Indication: Anaplastic large-cell lymphoma
     Dosage: CCCG-ALCL-2020 HIGH RISK GROUP (STANDARD GROUP) FOR BV2 CHEMOTHERAPY, CYCLOPHOSPHAMIDE FOR INJECTION
     Route: 041
     Dates: start: 20220527, end: 20220531
  2. SODIUM CHLORIDE [Suspect]
     Active Substance: SODIUM CHLORIDE
     Indication: Medication dilution
     Dosage: CCCG-ALCL-2020 HIGH RISK GROUP (STANDARD GROUP) FOR BV2 CHEMOTHERAPY, CYCLOPHOSPHAMIDE FOR INJECTION
     Route: 041
     Dates: start: 20220527, end: 20220531
  3. SODIUM CHLORIDE [Suspect]
     Active Substance: SODIUM CHLORIDE
     Dosage: CCCG-ALCL-2020 HIGH RISK GROUP (STANDARD GROUP) FOR BV2 CHEMOTHERAPY, DOXORUBICIN HYDROCHLORIDE FOR
     Route: 041
     Dates: start: 20220530, end: 20220531
  4. DOXORUBICIN HYDROCHLORIDE [Suspect]
     Active Substance: DOXORUBICIN HYDROCHLORIDE
     Indication: Anaplastic large-cell lymphoma
     Dosage: CCCG-ALCL-2020 HIGH RISK GROUP (STANDARD GROUP) FOR BV2 CHEMOTHERAPY, DOXORUBICIN HYDROCHLORIDE FOR
     Route: 041
     Dates: start: 20220530, end: 20220531

REACTIONS (1)
  - Myelosuppression [Recovering/Resolving]

NARRATIVE: CASE EVENT DATE: 20220607
